FAERS Safety Report 10674885 (Version 1)
Quarter: 2014Q4

REPORT INFORMATION
  Report Type: Spontaneous
  Country: US (occurrence: US)
  Receive Date: 20141224
  Receipt Date: 20141224
  Transmission Date: 20150529
  Serious: No
  Sender: FDA-Public Use
  Company Number: US-GLAXOSMITHKLINE-A1077671A

PATIENT

DRUGS (4)
  1. IMITREX SPRAY [Concomitant]
     Active Substance: SUMATRIPTAN
     Route: 045
  2. TREXIMET [Concomitant]
     Active Substance: NAPROXEN SODIUM\SUMATRIPTAN SUCCINATE
     Route: 048
  3. FLONASE [Suspect]
     Active Substance: FLUTICASONE PROPIONATE
     Route: 045
     Dates: start: 2009
  4. VERAMYST [Suspect]
     Active Substance: FLUTICASONE FUROATE
     Route: 045
     Dates: start: 2009

REACTIONS (2)
  - Off label use [Unknown]
  - Drug ineffective [Unknown]
